FAERS Safety Report 13983831 (Version 5)
Quarter: 2018Q1

REPORT INFORMATION
  Report Type: Spontaneous
  Country: JP (occurrence: JP)
  Receive Date: 20170918
  Receipt Date: 20180322
  Transmission Date: 20180508
  Serious: Yes (Hospitalization)
  Sender: FDA-Public Use
  Company Number: JP-PFIZER INC-2017397512

PATIENT
  Age: 68 Year
  Sex: Female
  Weight: 59.2 kg

DRUGS (20)
  1. EPERISONE HYDROCHLORIDE [Concomitant]
     Active Substance: EPERISONE HYDROCHLORIDE
     Indication: SPINAL COLUMN STENOSIS
     Dosage: 50 MG, 3X/DAY
     Route: 048
  2. ANCARON [Concomitant]
     Active Substance: AMIODARONE HYDROCHLORIDE
     Indication: VENTRICULAR TACHYCARDIA
     Dosage: UNK
     Route: 042
     Dates: start: 20170821, end: 20170830
  3. LYRICA [Suspect]
     Active Substance: PREGABALIN
     Indication: SPINAL COLUMN STENOSIS
     Dosage: 225 MG (3 CAPSULES), 2X/DAY (IN THE MORNING AND IN THE NIGHT)(BREAKFAST AND SUPPER)
     Route: 048
     Dates: start: 20140815
  4. LYRICA [Suspect]
     Active Substance: PREGABALIN
     Dosage: 6 DF, DAILY (3 CAPSULES OF PREGABALIN IN THE MORNING AND 3 CAPSULES BEFORE BEDTIME)
     Dates: start: 20170910
  5. TRAMAL [Suspect]
     Active Substance: TRAMADOL
     Indication: SPINAL COLUMN STENOSIS
     Dosage: 75 MG, 4X/DAY
     Route: 048
     Dates: start: 20170207
  6. AMIODARONE HYDROCHLORIDE. [Concomitant]
     Active Substance: AMIODARONE HYDROCHLORIDE
     Indication: VENTRICULAR TACHYCARDIA
     Dosage: 500 MG, DAILY (200 MG TWICE DAILY AND 100 MG ONCE DAILY)
     Route: 048
     Dates: start: 20170820
  7. GOODMIN [Concomitant]
     Active Substance: BROTIZOLAM
     Indication: INSOMNIA
     Dosage: 0.25 MG, 1X/DAY
     Route: 048
  8. TULOBUTEROL [Concomitant]
     Active Substance: TULOBUTEROL
     Indication: BRONCHITIS CHRONIC
     Dosage: 2 MG, 1X/DAY
     Route: 062
  9. TRAMAL [Suspect]
     Active Substance: TRAMADOL
     Indication: PAIN
     Dosage: 3 DF, 4X/DAY
     Dates: start: 20170904
  10. FUROSEMIDE. [Concomitant]
     Active Substance: FUROSEMIDE
     Indication: CARDIAC FAILURE CHRONIC
     Dosage: 40 MG, 1X/DAY
     Route: 048
  11. LIMAPROST ALFADEX [Concomitant]
     Active Substance: LIMAPROST
     Indication: SPINAL COLUMN STENOSIS
     Dosage: 5 UG, 2X/DAY
     Route: 048
  12. TRAMAL [Suspect]
     Active Substance: TRAMADOL
     Dosage: 3 DF, 3X/DAY
     Dates: start: 20170906
  13. THYRADIN S [Concomitant]
     Active Substance: LEVOTHYROXINE SODIUM
     Indication: HYPOTHYROIDISM
     Dosage: 50 UG, 1X/DAY
     Route: 048
  14. LYRICA [Suspect]
     Active Substance: PREGABALIN
     Dosage: 225 MG, 2X/DAY
     Dates: start: 20170905
  15. ASTOMIN [Concomitant]
     Active Substance: DIMEMORFAN
     Indication: BRONCHITIS CHRONIC
     Dosage: 20 MG, 3X/DAY
     Route: 048
  16. AMBROXOL HCL [Concomitant]
     Active Substance: AMBROXOL HYDROCHLORIDE
     Indication: BRONCHITIS CHRONIC
     Dosage: 15 MG, 3X/DAY
     Route: 048
  17. ETIZOLAM [Concomitant]
     Active Substance: ETIZOLAM
     Indication: ANXIETY DISORDER
     Dosage: 0.5 MG, 2X/DAY
     Route: 048
  18. SPIRONOLACTONE. [Concomitant]
     Active Substance: SPIRONOLACTONE
     Indication: CARDIAC FAILURE CHRONIC
     Dosage: 25 MG, 1X/DAY
     Route: 048
  19. LYRICA [Suspect]
     Active Substance: PREGABALIN
     Dosage: 5 DF, DAILY (2 CAPSULES OF PREGABALIN IN THE MORNING AND 3 CAPSULES IN THE EVENING)
     Dates: start: 20170909
  20. SENNOSIDE [Concomitant]
     Active Substance: SENNOSIDES
     Indication: CONSTIPATION
     Dosage: 24 MG, 1X/DAY
     Route: 048

REACTIONS (14)
  - Decreased appetite [Unknown]
  - Condition aggravated [Unknown]
  - Fall [Unknown]
  - Dysphonia [Unknown]
  - Cardiovascular disorder [Unknown]
  - Somnolence [Recovering/Resolving]
  - Red blood cell count decreased [Unknown]
  - Dizziness [Recovering/Resolving]
  - Nausea [Unknown]
  - Headache [Unknown]
  - Hypotension [Unknown]
  - Vomiting [Unknown]
  - Blood urea increased [Unknown]
  - Brain natriuretic peptide increased [Unknown]

NARRATIVE: CASE EVENT DATE: 20170818
